FAERS Safety Report 11312267 (Version 1)
Quarter: 2015Q3

REPORT INFORMATION
  Report Type: Report from Study
  Country: CO (occurrence: CO)
  Receive Date: 20150727
  Receipt Date: 20150727
  Transmission Date: 20151125
  Serious: Yes (Death)
  Sender: FDA-Public Use
  Company Number: US-ASTRAZENECA-2015SE71516

PATIENT
  Age: 103 Day
  Sex: Female

DRUGS (1)
  1. SYNAGIS [Suspect]
     Active Substance: PALIVIZUMAB
     Indication: BRONCHOPULMONARY DYSPLASIA
     Route: 030
     Dates: start: 20150205, end: 20150205

REACTIONS (3)
  - Haematochezia [Fatal]
  - Death [Fatal]
  - Vomiting [Fatal]

NARRATIVE: CASE EVENT DATE: 20150304
